FAERS Safety Report 5787637-2 (Version None)
Quarter: 2008Q2

REPORT INFORMATION
  Report Type: 
  Country: None (occurrence: None)
  Receive Date: 20080625
  Receipt Date: 20080605
  Transmission Date: 20081010
  Serious: No
  Sender: FDA-Public Use
  Company Number: US-ASTRAZENECA-2007UW22936

PATIENT
  Age: 84 Year
  Sex: Female
  Weight: 75.3 kg

DRUGS (22)
  1. PULMICORT RESPULES [Suspect]
     Indication: ASTHMA
     Dosage: 0.5 MG/2ML
     Route: 055
     Dates: start: 20070904
  2. PULMICORT RESPULES [Suspect]
     Indication: BRONCHITIS
     Dosage: 0.5 MG/2ML
     Route: 055
     Dates: start: 20070904
  3. PULMICORT RESPULES [Suspect]
     Indication: CHRONIC OBSTRUCTIVE PULMONARY DISEASE
     Dosage: 0.5 MG/2ML
     Route: 055
     Dates: start: 20070904
  4. ALBUTEROL [Concomitant]
     Dosage: 0.83 %
     Route: 055
  5. ACTONEL [Concomitant]
  6. CENTRUM SILVER [Concomitant]
  7. BORAGE OIL [Concomitant]
  8. OSCAL PLUS D [Concomitant]
  9. VALIUM [Concomitant]
     Indication: INSOMNIA
     Dosage: 2-4 MG
  10. KONYSL [Concomitant]
  11. ASPIRIN [Concomitant]
  12. TRICOR [Concomitant]
  13. POTASSIUM CHLORIDE [Concomitant]
  14. COMBIVENT [Concomitant]
  15. REGLAN [Concomitant]
  16. PRILOSEC [Concomitant]
  17. THEOPHYLLINE [Concomitant]
  18. LASIX [Concomitant]
  19. SINGULAIR [Concomitant]
  20. HYCODAN [Concomitant]
  21. COZAAR [Concomitant]
  22. PREDNISONE [Concomitant]

REACTIONS (8)
  - ABDOMINAL DISTENSION [None]
  - DIVERTICULUM [None]
  - DYSPHONIA [None]
  - GASTRITIS [None]
  - HIATUS HERNIA [None]
  - INCREASED APPETITE [None]
  - JOINT SWELLING [None]
  - WEIGHT INCREASED [None]
